FAERS Safety Report 11170014 (Version 1)
Quarter: 2015Q2

REPORT INFORMATION
  Report Type: Spontaneous
  Country: SE (occurrence: SE)
  Receive Date: 20150608
  Receipt Date: 20150608
  Transmission Date: 20150821
  Serious: Yes (Hospitalization)
  Sender: FDA-Public Use
  Company Number: SE-ABBVIE-15K-150-1401044-00

PATIENT
  Age: 60 Year
  Sex: Female

DRUGS (2)
  1. FLOXACILLIN SODIUM [Suspect]
     Active Substance: FLUCLOXACILLIN SODIUM ANHYDROUS
     Indication: PRODUCT USED FOR UNKNOWN INDICATION
     Route: 065
  2. HUMIRA [Suspect]
     Active Substance: ADALIMUMAB
     Indication: COLITIS ULCERATIVE
     Route: 065
     Dates: start: 2015, end: 201503

REACTIONS (5)
  - Erysipelas [Recovering/Resolving]
  - Toxic epidermal necrolysis [Recovering/Resolving]
  - Blister [Recovering/Resolving]
  - Wound [Recovering/Resolving]
  - Wound complication [Unknown]

NARRATIVE: CASE EVENT DATE: 2015
